FAERS Safety Report 7381338-5 (Version None)
Quarter: 2011Q1

REPORT INFORMATION
  Report Type: 
  Country: None (occurrence: None)
  Receive Date: 20110321
  Receipt Date: 20110311
  Transmission Date: 20110831
  Serious: Yes (Other)
  Sender: FDA-Public Use
  Company Number: 2011SP011497

PATIENT
  Sex: Female

DRUGS (1)
  1. CERAZETTE (DESOGESTREL) [Suspect]
     Indication: CONTRACEPTION
     Dosage: PO
     Route: 048
     Dates: start: 20110203, end: 20110221

REACTIONS (2)
  - AMENORRHOEA [None]
  - NEPHROLITHIASIS [None]
